FAERS Safety Report 15441585 (Version 1)
Quarter: 2018Q3

REPORT INFORMATION
  Report Type: Spontaneous
  Country: US (occurrence: US)
  Receive Date: 20180928
  Receipt Date: 20180928
  Transmission Date: 20181010
  Serious: No
  Sender: FDA-Public Use
  Company Number: US-AMGEN-USASP2018061359

PATIENT
  Age: 72 Year
  Sex: Female

DRUGS (3)
  1. PROLIA [Suspect]
     Active Substance: DENOSUMAB
     Indication: OSTEOPOROSIS POSTMENOPAUSAL
     Dosage: 60 MG, UNK
     Route: 065
     Dates: start: 20180416
  2. CALCIUM [Concomitant]
     Active Substance: CALCIUM
     Dosage: 500 MG, UNK
  3. VITAMIN D [Concomitant]
     Active Substance: CHOLECALCIFEROL
     Dosage: UNK

REACTIONS (10)
  - Gastrooesophageal reflux disease [Unknown]
  - Hypertension [Unknown]
  - Muscle spasms [Unknown]
  - Feeling abnormal [Unknown]
  - Nausea [Unknown]
  - Gastrointestinal disorder [Recovered/Resolved]
  - Irritable bowel syndrome [Unknown]
  - Constipation [Unknown]
  - Chest pain [Unknown]
  - Fear of injection [Unknown]

NARRATIVE: CASE EVENT DATE: 2018
